FAERS Safety Report 22277566 (Version 2)
Quarter: 2023Q2

REPORT INFORMATION
  Report Type: Report from Study
  Country: KR (occurrence: KR)
  Receive Date: 20230503
  Receipt Date: 20230530
  Transmission Date: 20230721
  Serious: Yes (Other)
  Sender: FDA-Public Use
  Company Number: KR-TEVA-2023-KR-2881577

PATIENT
  Age: 43 Year
  Sex: Female
  Weight: 55 kg

DRUGS (6)
  1. AJOVY [Suspect]
     Active Substance: FREMANEZUMAB-VFRM
     Indication: Migraine prophylaxis
     Dosage: 225 MILLIGRAM DAILY; LAST DOSE: 13-JUN-2022
     Route: 058
     Dates: start: 20220613
  2. NEWPRAM [Concomitant]
     Indication: Depression
     Dosage: 5 MILLIGRAM DAILY;
     Route: 048
     Dates: start: 20210929
  3. TOPAMED [Concomitant]
     Indication: Migraine
     Dosage: .5 DOSAGE FORMS DAILY;
     Route: 048
     Dates: start: 20210830
  4. NADOGARD [Concomitant]
     Indication: Hypertension
     Dosage: 40 MILLIGRAM DAILY;
     Route: 048
     Dates: start: 20210830
  5. NAXEN-F [Concomitant]
     Indication: Arthritis
     Dosage: 500 MILLIGRAM DAILY;
     Route: 048
     Dates: start: 20210830
  6. POLYBUTINE SR [Concomitant]
     Indication: Gastrooesophageal reflux disease
     Dosage: 300 MILLIGRAM DAILY;
     Route: 048
     Dates: start: 20210929

REACTIONS (1)
  - Arrhythmia [Recovered/Resolved]

NARRATIVE: CASE EVENT DATE: 20220905
